FAERS Safety Report 19505864 (Version 2)
Quarter: 2022Q3

REPORT INFORMATION
  Report Type: Spontaneous
  Country: DE (occurrence: DE)
  Receive Date: 20210708
  Receipt Date: 20220929
  Transmission Date: 20221027
  Serious: Yes (Hospitalization)
  Sender: FDA-Public Use
  Company Number: DE-ADRED-06498-01

PATIENT
  Age: 70 Year
  Sex: Female
  Weight: 59 kg

DRUGS (13)
  1. GABAPENTIN [Suspect]
     Active Substance: GABAPENTIN
     Indication: Product used for unknown indication
     Dosage: IF NECESSARY
     Route: 065
  2. ACYCLOVIR [Concomitant]
     Active Substance: ACYCLOVIR
     Indication: Product used for unknown indication
     Dosage: 800 MG, 1-0-1-0, TABLETS ()
     Route: 048
  3. BISOPROLOL [Concomitant]
     Active Substance: BISOPROLOL
     Indication: Product used for unknown indication
     Dosage: 5 MG, 1-0-1-0, TABLETS ()
     Route: 048
  4. MOXONIDINE [Concomitant]
     Active Substance: MOXONIDINE
     Indication: Product used for unknown indication
     Dosage: 0.3 MG, 0-0-1-0, TABLETS ()
     Route: 048
  5. CINACALCET [Concomitant]
     Active Substance: CINACALCET
     Indication: Product used for unknown indication
     Dosage: 30 MG, 4 TIMES A WEEK, TABLETS ()
     Route: 048
  6. DIHYDRALAZINE SULFATE [Concomitant]
     Active Substance: DIHYDRALAZINE SULFATE
     Indication: Product used for unknown indication
     Dosage: 25 MG, UP TO 4 TIMES A DAY DEPENDING ON THE RR, TABLETS ()
     Route: 048
  7. Ascorbinsaure (Vitamin C)/Biotin/Calciumpantothenat/Cyanocobalamin ... [Concomitant]
     Indication: Product used for unknown indication
     Dosage: ON DIALYSIS-FREE DAYS, CAPSULES ()
     Route: 048
  8. SIMVASTATIN [Concomitant]
     Active Substance: SIMVASTATIN
     Indication: Product used for unknown indication
     Dosage: 40 MG, 0-0-1-0, TABLETS ()
     Route: 048
  9. ASPIRIN [Concomitant]
     Active Substance: ASPIRIN
     Indication: Product used for unknown indication
     Dosage: 100 MG, 0-0-1-0, TABLETS ()
     Route: 048
  10. zinkoxid [Concomitant]
     Indication: Product used for unknown indication
     Dosage: 2 TO 3 TIMES A DAY, OINTMENT ()
     Route: 003
  11. OMEPRAZOLE [Concomitant]
     Active Substance: OMEPRAZOLE
     Indication: Product used for unknown indication
     Dosage: 40 MG, 1-0-1-0, CAPSULES ()
     Route: 048
  12. ENOXAPARIN [Concomitant]
     Active Substance: ENOXAPARIN
     Indication: Product used for unknown indication
     Dosage: 6000 IU, 0-0-1-0, SOLUTION FOR INJECTION / INFUSION ()
     Route: 058
  13. CANDESARTAN [Concomitant]
     Active Substance: CANDESARTAN
     Indication: Product used for unknown indication
     Dosage: 16 MG, 1-0-0-0, TABLETS ()
     Route: 048

REACTIONS (6)
  - Dizziness [Unknown]
  - Headache [Unknown]
  - Language disorder [Unknown]
  - Herpes zoster [Unknown]
  - Nausea [Unknown]
  - Dysaesthesia [Unknown]
